FAERS Safety Report 9935304 (Version 1)
Quarter: 2014Q1

REPORT INFORMATION
  Report Type: Spontaneous
  Country: US (occurrence: US)
  Receive Date: 20140228
  Receipt Date: 20140228
  Transmission Date: 20141002
  Serious: Yes (Life-Threatening, Hospitalization, Other)
  Sender: FDA-Public Use
  Company Number: US-ELI_LILLY_AND_COMPANY-US201402008060

PATIENT
  Sex: Male

DRUGS (7)
  1. HUMULIN 30% REGULAR, 70% NPH [Suspect]
     Indication: TYPE 2 DIABETES MELLITUS
     Dosage: UNK, UNKNOWN
     Route: 065
     Dates: start: 2003
  2. TAMSULOSINE HCL MERCK [Concomitant]
     Dosage: 0.4 MG, QD
  3. BUMETANIDE [Concomitant]
     Dosage: 1 MG, BID
  4. CARVEDILOL [Concomitant]
     Dosage: 6.25 MG, BID
  5. LOVASTATIN [Concomitant]
     Dosage: 20 MG, QD
  6. LEVOTHYROXIN [Concomitant]
     Dosage: 75 MG, QD
  7. BABY ASPIRIN [Concomitant]
     Dosage: 81 MG, QD

REACTIONS (12)
  - Pulmonary oedema [Unknown]
  - Respiratory distress [Unknown]
  - Dyspnoea [Unknown]
  - Cardiac disorder [Unknown]
  - Myocardial infarction [Unknown]
  - Renal failure [Unknown]
  - Embolic stroke [Unknown]
  - Aphasia [Recovering/Resolving]
  - Cholecystitis infective [Unknown]
  - Dyspnoea [Unknown]
  - Stress [Unknown]
  - Incorrect product storage [Unknown]
